FAERS Safety Report 16430265 (Version 1)
Quarter: 2019Q2

REPORT INFORMATION
  Report Type: Spontaneous
  Country: JP (occurrence: JP)
  Receive Date: 20190614
  Receipt Date: 20190614
  Transmission Date: 20190711
  Serious: Yes (Hospitalization, Other)
  Sender: FDA-Public Use
  Company Number: JP-ACCORD-132950

PATIENT
  Age: 75 Year
  Sex: Female

DRUGS (1)
  1. TEMOZOLOMIDE. [Suspect]
     Active Substance: TEMOZOLOMIDE
     Indication: GLIOBLASTOMA
     Dosage: SIX MAINTENANCE COURSES (150 MG/M2 FOR 5/28 DAYS)

REACTIONS (1)
  - Cognitive disorder [Not Recovered/Not Resolved]
